FAERS Safety Report 24398122 (Version 1)
Quarter: 2024Q4

REPORT INFORMATION
  Report Type: Report from Study
  Country: US (occurrence: US)
  Receive Date: 20241004
  Receipt Date: 20241004
  Transmission Date: 20250114
  Serious: Yes (Other)
  Sender: BAYER
  Company Number: US-BAYER-2024A141063

PATIENT

DRUGS (1)
  1. MIDOL COMPLETE GELCAPS [Suspect]
     Active Substance: ACETAMINOPHEN\CAFFEINE\PYRILAMINE MALEATE
     Route: 048

REACTIONS (5)
  - Anaphylactic reaction [Unknown]
  - Anaphylactic shock [Unknown]
  - Respiratory arrest [Unknown]
  - Eye swelling [Unknown]
  - Product label issue [None]
